FAERS Safety Report 21206224 (Version 1)
Quarter: 2022Q3

REPORT INFORMATION
  Report Type: Spontaneous
  Country: US (occurrence: US)
  Receive Date: 20220812
  Receipt Date: 20220812
  Transmission Date: 20221026
  Serious: Yes (Other)
  Sender: FDA-Public Use
  Company Number: US-GLAXOSMITHKLINE-USCH2022AMR027845

PATIENT

DRUGS (10)
  1. NICOTINE [Suspect]
     Active Substance: NICOTINE
     Indication: Product used for unknown indication
     Dosage: UNK
  2. HYDROCORTISONE [Suspect]
     Active Substance: HYDROCORTISONE
     Indication: Product used for unknown indication
     Dosage: UNK
  3. ARIPIPRAZOLE [Suspect]
     Active Substance: ARIPIPRAZOLE
     Indication: Product used for unknown indication
     Dosage: 4 MG, QD
     Dates: start: 2020, end: 20201128
  4. ABILIFY [Suspect]
     Active Substance: ARIPIPRAZOLE
     Indication: Schizoaffective disorder
     Dosage: 20 MG, QD
     Dates: start: 2006
  5. ABILIFY [Suspect]
     Active Substance: ARIPIPRAZOLE
     Dosage: 5 MG
  6. GABAPENTIN [Concomitant]
     Active Substance: GABAPENTIN
     Indication: Product used for unknown indication
     Dosage: UNK
  7. ATORVASTATIN [Concomitant]
     Active Substance: ATORVASTATIN
     Indication: Product used for unknown indication
     Dosage: UNK
  8. PROPRANOLOL [Concomitant]
     Active Substance: PROPRANOLOL HYDROCHLORIDE
     Indication: Product used for unknown indication
     Dosage: UNK
  9. THORAZINE [Concomitant]
     Active Substance: CHLORPROMAZINE
     Indication: Product used for unknown indication
     Dosage: UNK
  10. SEROQUEL [Concomitant]
     Active Substance: QUETIAPINE FUMARATE
     Indication: Product used for unknown indication
     Dosage: UNK

REACTIONS (22)
  - Anaphylactic reaction [Unknown]
  - Depressed level of consciousness [Unknown]
  - Temperature intolerance [Unknown]
  - Feeling hot [Unknown]
  - Heavy menstrual bleeding [Unknown]
  - Drug hypersensitivity [Unknown]
  - Muscle tightness [Unknown]
  - Dyspnoea [Unknown]
  - Arthralgia [Unknown]
  - Memory impairment [Unknown]
  - Polyuria [Unknown]
  - Photosensitivity reaction [Unknown]
  - Nausea [Unknown]
  - Restlessness [Unknown]
  - Constipation [Unknown]
  - Compulsive shopping [Unknown]
  - Anxiety [Unknown]
  - Musculoskeletal stiffness [Recovered/Resolved]
  - Rash [Recovering/Resolving]
  - Hypersensitivity [Unknown]
  - Tobacco user [Unknown]
  - Drug ineffective [Unknown]

NARRATIVE: CASE EVENT DATE: 20200101
